FAERS Safety Report 10393234 (Version 3)
Quarter: 2022Q1

REPORT INFORMATION
  Report Type: Report from Study
  Country: US (occurrence: US)
  Receive Date: 20140819
  Receipt Date: 20220331
  Transmission Date: 20220423
  Serious: Yes (Hospitalization)
  Sender: FDA-Public Use
  Company Number: US-VERTEX PHARMACEUTICALS INC-2014-003451

PATIENT
  Age: 13 Year
  Sex: Male

DRUGS (10)
  1. KALYDECO [Suspect]
     Active Substance: IVACAFTOR
     Indication: Cystic fibrosis
     Dosage: 150 MG, BID
     Route: 048
     Dates: start: 20120407
  2. KALYDECO [Suspect]
     Active Substance: IVACAFTOR
     Indication: Pancreatic failure
     Dosage: 150 MG
     Route: 048
     Dates: start: 20140718, end: 20151127
  3. KALYDECO [Suspect]
     Active Substance: IVACAFTOR
     Dosage: 150 MG
     Route: 048
     Dates: start: 20160406, end: 20160802
  4. KALYDECO [Suspect]
     Active Substance: IVACAFTOR
     Dosage: 150 MG
     Route: 048
     Dates: start: 20171101, end: 20190821
  5. PREVACID [Concomitant]
     Active Substance: LANSOPRAZOLE
     Dosage: 15 MG, BID (SLOW RELEASE CAPSULES)
     Route: 048
  6. ATARAX [Concomitant]
     Active Substance: HYDROXYZINE HYDROCHLORIDE
     Indication: Pruritus
     Dosage: 25 MG, PRN (TABLET)
     Route: 048
  7. CLARITIN [Concomitant]
     Active Substance: LORATADINE
     Dosage: 10 MG, QD (TABLET)
     Route: 048
  8. ZENPEP [Concomitant]
     Active Substance: PANCRELIPASE AMYLASE\PANCRELIPASE LIPASE\PANCRELIPASE PROTEASE
     Dosage: 3-4 CAPSULES TID WITH MEALS AND 2 CAPSULES WITH EACH SNACK
     Route: 065
  9. EPIPEN [Concomitant]
     Active Substance: EPINEPHRINE
     Indication: Anaphylactic reaction
     Dosage: 0.3 MG, PRN (INJECTION)
     Route: 030
  10. BENADRYL [Concomitant]
     Active Substance: DIPHENHYDRAMINE HYDROCHLORIDE
     Dosage: 25 MG, PRN (CAPSULE)
     Route: 048

REACTIONS (2)
  - Infective pulmonary exacerbation of cystic fibrosis [Unknown]
  - Pseudomonas test positive [Not Recovered/Not Resolved]

NARRATIVE: CASE EVENT DATE: 20140710
